FAERS Safety Report 20514057 (Version 5)
Quarter: 2024Q1

REPORT INFORMATION
  Report Type: Spontaneous
  Country: US (occurrence: US)
  Receive Date: 20220224
  Receipt Date: 20240304
  Transmission Date: 20240410
  Serious: Yes (Hospitalization, Other)
  Sender: FDA-Public Use
  Company Number: US-AMNEAL PHARMACEUTICALS-2021-AMRX-03503

PATIENT
  Age: 70 Year
  Sex: Female

DRUGS (4)
  1. RYTARY [Suspect]
     Active Substance: CARBIDOPA\LEVODOPA
     Indication: Parkinson^s disease
     Dosage: 3 CAPSULES, 5X/DAY
     Route: 048
     Dates: end: 20210813
  2. RYTARY [Suspect]
     Active Substance: CARBIDOPA\LEVODOPA
     Dosage: 3 CAPSULES (36.25/145MG), 5X/DAY
     Route: 048
  3. RYTARY [Suspect]
     Active Substance: CARBIDOPA\LEVODOPA
     Dosage: 23.75MG-95MG, 2 CAPS EVERY 2.5 HOURS (7 TIMES A DAY AT 6AM, 8:30AM, 11AM, 1:30PM, 4PM, 6:30PM, AND 9
     Route: 048
     Dates: start: 20240110
  4. RYTARY [Suspect]
     Active Substance: CARBIDOPA\LEVODOPA
     Dosage: (36.25/145 MG) TAKE TWO CAPSULES BY MOUTH SIX TIMES DAILY. TAKE AN ADDITIONAL ONE CAPSULE AS NEEDED
     Route: 048
     Dates: start: 20240223

REACTIONS (9)
  - Rib fracture [Unknown]
  - Fall [Unknown]
  - Pancreatitis [Unknown]
  - Spinal pain [Unknown]
  - Diverticulitis [Unknown]
  - Nasopharyngitis [Unknown]
  - Memory impairment [Unknown]
  - Gait disturbance [Unknown]
  - Abdominal discomfort [Unknown]

NARRATIVE: CASE EVENT DATE: 20230122
